FAERS Safety Report 25764231 (Version 1)
Quarter: 2025Q3

REPORT INFORMATION
  Report Type: Spontaneous
  Country: US (occurrence: US)
  Receive Date: 20250905
  Receipt Date: 20250905
  Transmission Date: 20251020
  Serious: No
  Sender: DOMPE FARMACEUTICI
  Company Number: US-FARMAPROD-202412-4189

PATIENT
  Age: 72 Year
  Sex: Female
  Weight: 95.71 kg

DRUGS (20)
  1. OXERVATE [Suspect]
     Active Substance: CENEGERMIN-BKBJ
     Indication: Neurotrophic keratopathy
     Route: 047
     Dates: start: 20241209
  2. OXERVATE [Suspect]
     Active Substance: CENEGERMIN-BKBJ
     Indication: Product used for unknown indication
  3. REFRESH CLASSIC [Concomitant]
     Active Substance: POLYVINYL ALCOHOL\POVIDONE
  4. ADDERALL [Concomitant]
     Active Substance: AMPHETAMINE ASPARTATE\AMPHETAMINE SULFATE\DEXTROAMPHETAMINE SACCHARATE\DEXTROAMPHETAMINE SULFATE
  5. ZYPREXA [Concomitant]
     Active Substance: OLANZAPINE
  6. FIORICET [Concomitant]
     Active Substance: ACETAMINOPHEN\BUTALBITAL\CAFFEINE
  7. PRISTIQ EXTENDED-RELEASE [Concomitant]
     Active Substance: DESVENLAFAXINE SUCCINATE
  8. BUTALBITALACETAMINOPHEN- CAFFE [Concomitant]
  9. HYDROCHLOROTHIAZIDE [Concomitant]
     Active Substance: HYDROCHLOROTHIAZIDE
  10. ATOMOXETINE HYDROCHLORIDE [Concomitant]
     Active Substance: ATOMOXETINE HYDROCHLORIDE
  11. GABAPENTIN [Concomitant]
     Active Substance: GABAPENTIN
  12. DESVENLAFAXINE SUCCINATE [Concomitant]
     Active Substance: DESVENLAFAXINE SUCCINATE
  13. MONTELUKAST SODIUM [Concomitant]
     Active Substance: MONTELUKAST SODIUM
  14. LOSARTAN POTASSIUM [Concomitant]
     Active Substance: LOSARTAN POTASSIUM
  15. AZELASTINE HYDROCHLORIDE [Concomitant]
     Active Substance: AZELASTINE HYDROCHLORIDE
  16. ALPRAZOLAM [Concomitant]
     Active Substance: ALPRAZOLAM
  17. PROCHLORPERAZINE MALEATE [Concomitant]
     Active Substance: PROCHLORPERAZINE MALEATE
  18. AZELASTINE HYDROCHLORIDE [Concomitant]
     Active Substance: AZELASTINE HYDROCHLORIDE
  19. MECLIZINE HYDROCHLORIDE [Concomitant]
     Active Substance: MECLIZINE HYDROCHLORIDE
  20. DEXTROAMPHETAMINE SACCHARATE, AMPHETAMINE ASPARTATE, DEXTROAMPHETAMINE [Concomitant]
     Active Substance: AMPHETAMINE ASPARTATE\AMPHETAMINE SULFATE\DEXTROAMPHETAMINE SACCHARATE\DEXTROAMPHETAMINE SULFATE

REACTIONS (9)
  - Disorientation [Unknown]
  - Product dose omission issue [Unknown]
  - Eye pain [Unknown]
  - Eye swelling [Unknown]
  - Oropharyngeal pain [Recovering/Resolving]
  - Ear disorder [Unknown]
  - Tinnitus [Unknown]
  - Sinusitis [Unknown]
  - Migraine [Unknown]

NARRATIVE: CASE EVENT DATE: 20241216
